FAERS Safety Report 6542894-X (Version None)
Quarter: 2010Q1

REPORT INFORMATION
  Report Type: 
  Country: None (occurrence: None)
  Receive Date: 20100120
  Receipt Date: 20100113
  Transmission Date: 20100710
  Serious: Yes (Death, Hospitalization, Disabling)
  Sender: FDA-Public Use
  Company Number: CN-BAYER-200943950GPV

PATIENT
  Age: 67 Year
  Sex: Female
  Weight: 52 kg

DRUGS (3)
  1. SORAFENIB [Suspect]
     Indication: HEPATIC NEOPLASM MALIGNANT
     Dosage: TOTAL DAILY DOSE: 800 MG
     Route: 048
     Dates: start: 20091120, end: 20091127
  2. PLACEBO TO ERLOTINIB [Suspect]
     Indication: HEPATIC NEOPLASM MALIGNANT
     Route: 048
     Dates: start: 20091120, end: 20091127
  3. RESERPINE [Concomitant]
     Indication: HYPERTENSION
     Dosage: 2 #
     Route: 048
     Dates: start: 20081101

REACTIONS (3)
  - ACUTE HEPATIC FAILURE [None]
  - DEATH [None]
  - RENAL FAILURE ACUTE [None]
